FAERS Safety Report 25167106 (Version 1)
Quarter: 2025Q2

REPORT INFORMATION
  Report Type: Spontaneous
  Country: US (occurrence: None)
  Receive Date: 20250404
  Receipt Date: 20250404
  Transmission Date: 20250717
  Serious: Yes (Disabling)
  Sender: FDA-CTU
  Company Number: None

PATIENT
  Age: 33 Year
  Sex: Male
  Weight: 74.25 kg

DRUGS (3)
  1. HERBALS [Suspect]
     Active Substance: HERBALS
     Indication: Pain
     Dates: start: 20240816, end: 20250404
  2. HERBALS [Suspect]
     Active Substance: HERBALS
  3. HERBALS\MITRAGYNINE [Suspect]
     Active Substance: HERBALS\MITRAGYNINE

REACTIONS (1)
  - Drug dependence [None]

NARRATIVE: CASE EVENT DATE: 20250404
